FAERS Safety Report 14590503 (Version 1)
Quarter: 2018Q1

REPORT INFORMATION
  Report Type: Report from Study
  Country: GB (occurrence: GB)
  Receive Date: 20180302
  Receipt Date: 20180302
  Transmission Date: 20180509
  Serious: Yes (Death, Hospitalization)
  Sender: FDA-Public Use
  Company Number: PHHY2018GB005727

PATIENT
  Age: 43 Year
  Sex: Female
  Weight: 102 kg

DRUGS (1)
  1. COSENTYX [Suspect]
     Active Substance: SECUKINUMAB
     Indication: PSORIASIS
     Dosage: UNK
     Route: 065
     Dates: start: 20170324, end: 20170704

REACTIONS (12)
  - Multiple organ dysfunction syndrome [Fatal]
  - Sepsis [Fatal]
  - Pyrexia [Fatal]
  - Acute hepatic failure [Unknown]
  - Wound [Unknown]
  - Upper gastrointestinal haemorrhage [Unknown]
  - Peripancreatic fluid collection [Unknown]
  - Intestinal ischaemia [Fatal]
  - Ventricular dysfunction [Unknown]
  - Renal impairment [Unknown]
  - Pulmonary oedema [Unknown]
  - Fungaemia [Unknown]
